FAERS Safety Report 7371898-2 (Version None)
Quarter: 2011Q1

REPORT INFORMATION
  Report Type: 
  Country: None (occurrence: None)
  Receive Date: 20110324
  Receipt Date: 20110318
  Transmission Date: 20110831
  Serious: Yes (Congenital Anomaly)
  Sender: FDA-Public Use
  Company Number: US-GILEAD-2011-0035740

PATIENT
  Age: 37 Week
  Sex: Female
  Weight: 2.878 kg

DRUGS (1)
  1. VIREAD [Suspect]
     Indication: HEPATITIS B
     Dates: start: 20090718

REACTIONS (2)
  - CONGENITAL CYSTIC KIDNEY DISEASE [None]
  - HYDRONEPHROSIS [None]
